FAERS Safety Report 8887001 (Version 1)
Quarter: 2012Q4

REPORT INFORMATION
  Report Type: 
  Country: BR (occurrence: BR)
  Receive Date: 20121105
  Receipt Date: 20121105
  Transmission Date: 20130627
  Serious: Yes (Other)
  Sender: FDA-Public Use
  Company Number: BR-JNJFOC-20121101081

PATIENT
  Age: 39 Year
  Sex: Female
  Weight: 70 kg

DRUGS (1)
  1. LISTERINE WHITENING [Suspect]
     Indication: DENTAL CARE
     Dosage: half of the cover of the product as measure
     Route: 002
     Dates: start: 20121018, end: 20121018

REACTIONS (2)
  - Application site pain [Not Recovered/Not Resolved]
  - Swelling face [Not Recovered/Not Resolved]
